FAERS Safety Report 8790227 (Version 3)
Quarter: 2016Q1

REPORT INFORMATION
  Report Type: Spontaneous
  Country: US (occurrence: US)
  Receive Date: 20120917
  Receipt Date: 20160203
  Transmission Date: 20160526
  Serious: No
  Sender: FDA-Public Use
  Company Number: US-JNJFOC-20120903444

PATIENT

DRUGS (2)
  1. INVEGA SUSTENNA [Suspect]
     Active Substance: PALIPERIDONE PALMITATE
     Indication: PRODUCT USED FOR UNKNOWN INDICATION
     Dosage: DAY 1 DOSE
     Route: 030
     Dates: start: 20120824
  2. INVEGA SUSTENNA [Suspect]
     Active Substance: PALIPERIDONE PALMITATE
     Indication: PRODUCT USED FOR UNKNOWN INDICATION
     Dosage: DAY8 DOSE
     Route: 030
     Dates: start: 20120831

REACTIONS (3)
  - Needle issue [Unknown]
  - Underdose [Unknown]
  - Product physical issue [Unknown]

NARRATIVE: CASE EVENT DATE: 20120824
